FAERS Safety Report 6677945-5 (Version None)
Quarter: 2010Q2

REPORT INFORMATION
  Report Type: 
  Country: None (occurrence: None)
  Receive Date: 20100412
  Receipt Date: 20100406
  Transmission Date: 20101027
  Serious: Yes (Death, Life-Threatening, Hospitalization)
  Sender: FDA-Public Use
  Company Number: JP-ELI_LILLY_AND_COMPANY-JP201003006554

PATIENT
  Age: 61 Year
  Sex: Male
  Weight: 59.5 kg

DRUGS (29)
  1. PEMETREXED [Suspect]
     Indication: LUNG ADENOCARCINOMA STAGE IV
     Dosage: 500 MG/M2, OTHER
     Route: 042
     Dates: start: 20100122, end: 20100122
  2. CARBOPLATIN [Concomitant]
     Indication: LUNG ADENOCARCINOMA STAGE IV
     Dosage: 400 MG, OTHER
     Route: 042
     Dates: start: 20100122, end: 20100122
  3. METHYCOBAL [Concomitant]
     Dosage: 1 MG, UNK
     Route: 030
     Dates: start: 20100118, end: 20100118
  4. PANVITAN [Concomitant]
     Dosage: 1 G, DAILY (1/D)
     Route: 048
     Dates: start: 20100119, end: 20100205
  5. SEROTONE [Concomitant]
     Dosage: UNK, UNK
     Route: 042
     Dates: start: 20100122, end: 20100122
  6. DECADRON [Concomitant]
     Dosage: UNK, UNK
     Route: 042
     Dates: start: 20100122, end: 20100122
  7. MAINTATE [Concomitant]
     Indication: HYPERTENSION
     Route: 048
     Dates: start: 20100204
  8. ZETIA [Concomitant]
     Indication: HYPERLIPIDAEMIA
     Route: 048
     Dates: end: 20100203
  9. BEZATOL - SLOW RELEASE [Concomitant]
     Indication: HYPERLIPIDAEMIA
     Route: 048
     Dates: end: 20100203
  10. ADALAT CR /SCH/ [Concomitant]
     Indication: HYPERTENSION
     Route: 048
     Dates: end: 20100203
  11. OMEPRAL [Concomitant]
     Indication: REFLUX OESOPHAGITIS
     Route: 065
     Dates: end: 20100204
  12. CELECOXIB [Concomitant]
     Indication: CANCER PAIN
     Route: 048
     Dates: end: 20100204
  13. MUCOSTA [Concomitant]
     Indication: PROPHYLAXIS
     Route: 048
     Dates: end: 20100204
  14. VOLTAREN                                /SCH/ [Concomitant]
     Indication: CANCER PAIN
     Route: 054
     Dates: end: 20100204
  15. GABAPEN [Concomitant]
     Indication: CANCER PAIN
     Route: 048
     Dates: end: 20100204
  16. AMITRIPTYLINE HCL [Concomitant]
     Indication: CANCER PAIN
     Route: 065
     Dates: end: 20100204
  17. OXYCONTIN [Concomitant]
     Indication: CANCER PAIN
     Route: 048
     Dates: end: 20100204
  18. OXINORM [Concomitant]
     Indication: CANCER PAIN
     Route: 048
     Dates: end: 20100204
  19. ZOMETA [Concomitant]
     Indication: CANCER PAIN
     Route: 042
     Dates: start: 20100115, end: 20100205
  20. UNASYN [Concomitant]
     Indication: INFECTION PROPHYLAXIS
     Route: 042
     Dates: start: 20100119, end: 20100122
  21. ELCITONIN [Concomitant]
     Indication: CANCER PAIN
     Route: 030
     Dates: start: 20100121, end: 20100204
  22. MICONAZOLE NITRATE [Concomitant]
     Indication: OESOPHAGEAL CANDIDIASIS
     Route: 048
     Dates: start: 20100125, end: 20100128
  23. GASMOTIN [Concomitant]
     Indication: DECREASED APPETITE
     Route: 048
     Dates: start: 20100127, end: 20100204
  24. PRIMPERAN                               /SCH/ [Concomitant]
     Indication: NAUSEA
     Route: 042
     Dates: start: 20100127, end: 20100201
  25. VITAMEDIN [Concomitant]
     Route: 065
     Dates: start: 20100128, end: 20100201
  26. PRODIF [Concomitant]
     Indication: OESOPHAGEAL CANDIDIASIS
     Route: 042
     Dates: start: 20100128, end: 20100209
  27. LASIX [Concomitant]
     Indication: RENAL IMPAIRMENT
     Route: 042
     Dates: start: 20100129, end: 20100210
  28. MORPHINE [Concomitant]
     Indication: CANCER PAIN
     Route: 065
     Dates: start: 20100204, end: 20100210
  29. SERENACE [Concomitant]
     Indication: PROPHYLAXIS
     Route: 065
     Dates: start: 20100206, end: 20100210

REACTIONS (14)
  - ACUTE RESPIRATORY DISTRESS SYNDROME [None]
  - BRAIN STEM INFARCTION [None]
  - CONDITION AGGRAVATED [None]
  - DYSPHAGIA [None]
  - LYMPHOCYTE COUNT DECREASED [None]
  - NEUTROPHIL COUNT DECREASED [None]
  - OESOPHAGEAL CANDIDIASIS [None]
  - PLATELET COUNT DECREASED [None]
  - PLEURAL EFFUSION [None]
  - PNEUMONIA BACTERIAL [None]
  - PULMONARY OEDEMA [None]
  - RENAL IMPAIRMENT [None]
  - RESPIRATORY FAILURE [None]
  - WHITE BLOOD CELL COUNT DECREASED [None]
